FAERS Safety Report 7524963-0 (Version None)
Quarter: 2011Q2

REPORT INFORMATION
  Report Type: 
  Country: None (occurrence: None)
  Receive Date: 20110606
  Receipt Date: 20110523
  Transmission Date: 20111010
  Serious: Yes (Death)
  Sender: FDA-Public Use
  Company Number: FR-ELI_LILLY_AND_COMPANY-FR201105006591

PATIENT
  Age: 26 Year
  Sex: Male

DRUGS (2)
  1. PIPORTIL [Concomitant]
     Indication: SCHIZOPHRENIA
     Dosage: 25 MG, OTHER
     Route: 030
  2. ZYPREXA [Suspect]
     Indication: SCHIZOPHRENIA
     Dosage: 10 MG, QD
     Route: 048

REACTIONS (2)
  - PSYCHOTIC DISORDER [None]
  - COMPLETED SUICIDE [None]
